FAERS Safety Report 7717578-2 (Version None)
Quarter: 2011Q3

REPORT INFORMATION
  Report Type: 
  Country: None (occurrence: None)
  Receive Date: 20110830
  Receipt Date: 20110818
  Transmission Date: 20111222
  Serious: No
  Sender: FDA-Public Use
  Company Number: US-B.I. PHARMACEUTICALS,INC./RIDGEFIELD-2011-BP-20312BP

PATIENT
  Sex: Female

DRUGS (5)
  1. PRADAXA [Suspect]
     Indication: ATRIAL FIBRILLATION
     Dosage: 300 MG
     Route: 048
     Dates: start: 20110801
  2. MULTAQ [Concomitant]
     Indication: ATRIAL FIBRILLATION
     Dates: start: 20110101
  3. RAMIPRIL [Concomitant]
     Indication: HYPERTENSION
     Dosage: 5 MG
     Route: 048
     Dates: start: 20000101
  4. METOPROLOL TARTRATE [Concomitant]
     Indication: HYPERTENSION
     Dosage: 25 MG
     Route: 048
     Dates: start: 20070101
  5. CRESTOR [Concomitant]
     Indication: BLOOD CHOLESTEROL INCREASED
     Dates: start: 20070101

REACTIONS (1)
  - ALOPECIA [None]
